FAERS Safety Report 7643961-X (Version None)
Quarter: 2011Q3

REPORT INFORMATION
  Report Type: 
  Country: None (occurrence: None)
  Receive Date: 20110729
  Receipt Date: 20100730
  Transmission Date: 20111222
  Serious: No
  Sender: FDA-Public Use
  Company Number: US-GLAXOSMITHKLINE-A0873222A

PATIENT
  Age: 46 Year
  Sex: Female

DRUGS (10)
  1. ZANTAC [Suspect]
     Indication: GASTROOESOPHAGEAL REFLUX DISEASE
     Dosage: 300MG PER DAY
     Route: 048
     Dates: end: 20100412
  2. SINGULAIR [Concomitant]
  3. PROZAC [Concomitant]
  4. SYNTHROID [Concomitant]
  5. ADVAIR DISKUS 100/50 [Concomitant]
  6. SPIRIVA [Concomitant]
  7. VERAMYST [Concomitant]
  8. BENICAR [Concomitant]
  9. ALBUTEROL [Concomitant]
  10. PROVENTIL [Concomitant]

REACTIONS (1)
  - DRUG INEFFECTIVE [None]
